FAERS Safety Report 4276938-5 (Version None)
Quarter: 2004Q1

REPORT INFORMATION
  Report Type: 
  Country: None (occurrence: None)
  Receive Date: 20040120
  Receipt Date: 20040112
  Transmission Date: 20041129
  Serious: Yes (Life-Threatening)
  Sender: FDA-Public Use
  Company Number: 828

PATIENT
  Age: 59 Year
  Sex: Female

DRUGS (1)
  1. AMNESTEEM [Suspect]
     Dosage: ORAL
     Route: 048
     Dates: start: 20030402

REACTIONS (1)
  - LUNG NEOPLASM MALIGNANT [None]
